FAERS Safety Report 21488591 (Version 1)
Quarter: 2022Q4

REPORT INFORMATION
  Report Type: Report from Study
  Country: US (occurrence: US)
  Receive Date: 20221021
  Receipt Date: 20221021
  Transmission Date: 20230113
  Serious: No
  Sender: FDA-Public Use
  Company Number: US-ABBVIE-4150827

PATIENT
  Age: 82 Year
  Sex: Male

DRUGS (2)
  1. LUPRON [Suspect]
     Active Substance: LEUPROLIDE ACETATE
     Indication: Product used for unknown indication
     Route: 065
     Dates: start: 202208
  2. ENZALUTAMIDE [Suspect]
     Active Substance: ENZALUTAMIDE
     Indication: Prostate cancer
     Route: 048
     Dates: start: 2022

REACTIONS (5)
  - Urinary tract infection [Unknown]
  - Dysuria [Unknown]
  - Penile burning sensation [Unknown]
  - Pollakiuria [Unknown]
  - Middle insomnia [Unknown]

NARRATIVE: CASE EVENT DATE: 20220801
